FAERS Safety Report 9786992 (Version 2)
Quarter: 2014Q1

REPORT INFORMATION
  Report Type: Spontaneous
  Country: US (occurrence: US)
  Receive Date: 20131227
  Receipt Date: 20140206
  Transmission Date: 20141002
  Serious: Yes (Other)
  Sender: FDA-Public Use
  Company Number: CHPA2013US018809

PATIENT
  Age: 67 Year
  Sex: Female

DRUGS (4)
  1. PERDIEM - UNKNOWN [Suspect]
     Indication: LAXATIVE SUPPORTIVE CARE
     Dosage: 3 DF, QD
     Route: 048
     Dates: start: 2001
  2. FUROSEMIDE [Concomitant]
     Indication: HYPERTENSION
  3. LISINOPRIL [Concomitant]
     Indication: HYPERTENSION
  4. POTASSIUM [Concomitant]

REACTIONS (3)
  - Drug dependence [Not Recovered/Not Resolved]
  - Incorrect drug administration duration [Unknown]
  - Incorrect dose administered [Unknown]
